FAERS Safety Report 9398965 (Version 3)
Quarter: 2014Q1

REPORT INFORMATION
  Report Type: Report from Study
  Country: GB (occurrence: GB)
  Receive Date: 20130712
  Receipt Date: 20140107
  Transmission Date: 20141002
  Serious: Yes (Life-Threatening)
  Sender: FDA-Public Use
  Company Number: GB-VERTEX PHARMACEUTICALS INC-2013-007925

PATIENT
  Sex: Male

DRUGS (3)
  1. VX-950 (TELAPREVIR) [Suspect]
     Indication: HEPATITIS C
     Dosage: 750 MG, TID, TABLET
     Route: 048
     Dates: start: 20110916, end: 20111209
  2. RIBAVIRIN [Suspect]
     Indication: HEPATITIS C
     Dosage: DOSAGE FORM: UNSPECIFIED
     Route: 065
     Dates: start: 20110916, end: 20120817
  3. PEGYLATED INTERFERON [Suspect]
     Indication: HEPATITIS C
     Dosage: DOSAGE FORM: UNSPECIFIED
     Route: 065
     Dates: start: 20110916, end: 20120817

REACTIONS (1)
  - Hepatocellular carcinoma [Unknown]
